FAERS Safety Report 17047408 (Version 1)
Quarter: 2019Q4

REPORT INFORMATION
  Report Type: Spontaneous
  Country: US (occurrence: US)
  Receive Date: 20191119
  Receipt Date: 20191119
  Transmission Date: 20200122
  Serious: Yes (Other)
  Sender: FDA-Public Use
  Company Number: US-ROCHE-2468411

PATIENT
  Age: 66 Year
  Sex: Female

DRUGS (7)
  1. SYNTHROID [Concomitant]
     Active Substance: LEVOTHYROXINE SODIUM
     Route: 048
  2. BIOTIN [Concomitant]
     Active Substance: BIOTIN
     Route: 048
  3. VITAMIN B [Concomitant]
     Active Substance: VITAMIN B
     Route: 048
  4. VITAMIN A [RETINOL] [Concomitant]
     Active Substance: RETINOL
     Route: 048
  5. VITAMIN C [Concomitant]
     Active Substance: ASCORBIC ACID
     Route: 048
  6. TAMIFLU [Suspect]
     Active Substance: OSELTAMIVIR PHOSPHATE
     Indication: NASOPHARYNGITIS
     Route: 048
     Dates: start: 20180130
  7. SPIRONOLACTONE. [Concomitant]
     Active Substance: SPIRONOLACTONE
     Indication: ALOPECIA
     Route: 048

REACTIONS (18)
  - Cerebrovascular accident [Recovered/Resolved]
  - Blister [Recovered/Resolved]
  - Pruritus [Not Recovered/Not Resolved]
  - Insomnia [Recovered/Resolved]
  - Blood pressure increased [Recovered/Resolved]
  - Alopecia [Not Recovered/Not Resolved]
  - Panic attack [Recovered/Resolved]
  - Agitation [Recovered/Resolved]
  - Rash erythematous [Not Recovered/Not Resolved]
  - Eye haemorrhage [Recovered/Resolved]
  - Urticaria [Recovered/Resolved]
  - Eczema [Not Recovered/Not Resolved]
  - Paranoia [Recovered/Resolved]
  - Anxiety [Recovered/Resolved]
  - Hypersensitivity [Not Recovered/Not Resolved]
  - Intentional self-injury [Recovered/Resolved]
  - Nervousness [Recovered/Resolved]
  - Tremor [Recovered/Resolved]

NARRATIVE: CASE EVENT DATE: 20180203
